FAERS Safety Report 4440224-0 (Version None)
Quarter: 2004Q3

REPORT INFORMATION
  Report Type: 
  Country: None (occurrence: None)
  Receive Date: 20040831
  Receipt Date: 20040816
  Transmission Date: 20050211
  Serious: Yes (Hospitalization)
  Sender: FDA-Public Use
  Company Number: 04P-083-0270879-00

PATIENT
  Age: 57 Year
  Sex: Male
  Weight: 65 kg

DRUGS (2)
  1. ISOPTIN [Suspect]
     Dosage: 80 MG, 20 IN 1 D, PER ORAL; ONE HOUR PRIOR TO ER ADMISSION
     Route: 048
  2. ATENOLOL [Suspect]
     Dosage: 100 MG, 28 IN 1 D, PER ORAL; ONE HOUR PRIOR TO ER ADMISSION
     Route: 048

REACTIONS (10)
  - ATRIOVENTRICULAR BLOCK FIRST DEGREE [None]
  - BLOOD PRESSURE DECREASED [None]
  - COLD SWEAT [None]
  - HYPOVENTILATION [None]
  - MULTIPLE DRUG OVERDOSE INTENTIONAL [None]
  - PULMONARY OEDEMA [None]
  - PULSE ABSENT [None]
  - SINUS BRADYCARDIA [None]
  - SUICIDE ATTEMPT [None]
  - URINE OUTPUT DECREASED [None]
